FAERS Safety Report 20706085 (Version 1)
Quarter: 2022Q2

REPORT INFORMATION
  Report Type: Spontaneous
  Country: US (occurrence: US)
  Receive Date: 20220413
  Receipt Date: 20220413
  Transmission Date: 20220721
  Serious: No
  Sender: FDA-Public Use
  Company Number: US-PFIZER INC-202101006179

PATIENT
  Age: 61 Year
  Sex: Male
  Weight: 62.14 kg

DRUGS (1)
  1. CHANTIX [Suspect]
     Active Substance: VARENICLINE TARTRATE
     Indication: Smoking cessation therapy
     Dosage: 0.5 MG, 1X/DAY (0.5MG ONCE A DAY BY MOUTH THEN HE WAS TAKING 1MG TABLET ONCE A DAY BY MOUTH )
     Route: 048
     Dates: start: 20210311, end: 202103

REACTIONS (5)
  - Feeling jittery [Recovered/Resolved]
  - Weight decreased [Unknown]
  - Drug ineffective [Unknown]
  - Off label use [Unknown]
  - Product use issue [Unknown]

NARRATIVE: CASE EVENT DATE: 20210301
